FAERS Safety Report 9981251 (Version 2)
Quarter: 2014Q3

REPORT INFORMATION
  Report Type: Spontaneous
  Country: JP (occurrence: JP)
  Receive Date: 20140307
  Receipt Date: 20140718
  Transmission Date: 20150326
  Serious: Yes (Hospitalization)
  Sender: FDA-Public Use
  Company Number: JP-TAKEDA-2014TEU001930

PATIENT
  Age: 66 Year
  Sex: Male

DRUGS (9)
  1. CEFAMEZIN                          /00288502/ [Concomitant]
     Active Substance: CEFAZOLIN
     Indication: HEPATIC CANCER METASTATIC
     Dosage: 1A X 3/1DAY
     Dates: start: 20130205, end: 20130205
  2. ALBUMINAR                          /01102501/ [Concomitant]
     Dosage: 12.5G/250ML, 500ML
     Route: 042
  3. STORONGER NEO-MINOPHAGEN C [Concomitant]
     Indication: HEPATIC CANCER METASTATIC
     Dosage: 1A X 1/1DAY
     Dates: start: 20130205, end: 20130208
  4. LASIX [Concomitant]
     Active Substance: FUROSEMIDE
     Indication: HEPATIC CANCER METASTATIC
     Dosage: 2A X 1/1DAY
     Dates: start: 20130205, end: 20130208
  5. HEPARIN [Concomitant]
     Active Substance: HEPARIN SODIUM
     Indication: ATRIAL FIBRILLATION
     Dosage: 12000 IU, QD
     Dates: start: 20130205, end: 20130215
  6. FIBROGAMMIN P [Concomitant]
     Active Substance: FACTOR XIII CONCENTRATE (HUMAN)
     Dosage: UNK
     Route: 042
  7. SULPERAZON [Concomitant]
     Active Substance: CEFOPERAZONE SODIUM\SULBACTAM SODIUM
     Indication: CHOLANGITIS
     Dosage: 1 G, BID
     Dates: start: 20130304, end: 20130308
  8. TACHOSIL [Suspect]
     Active Substance: FIBRINOGEN HUMAN\THROMBIN HUMAN
     Indication: PROPHYLAXIS
     Dosage: 1SHEET /1DAY
     Route: 065
     Dates: start: 20130205
  9. OMEPRAL                            /00661201/ [Concomitant]
     Active Substance: OMEPRAZOLE
     Indication: HEPATIC CANCER METASTATIC
     Dosage: 1A X 2/1DAY
     Dates: start: 20130205, end: 20130208

REACTIONS (1)
  - Post procedural bile leak [Recovered/Resolved with Sequelae]

NARRATIVE: CASE EVENT DATE: 20130219
